FAERS Safety Report 6571473-3 (Version None)
Quarter: 2010Q1

REPORT INFORMATION
  Report Type: 
  Country: None (occurrence: None)
  Receive Date: 20100205
  Receipt Date: 20100127
  Transmission Date: 20100710
  Serious: Yes (Other)
  Sender: FDA-Public Use
  Company Number: US-SANOFI-AVENTIS-2010SA005545

PATIENT
  Age: 60 Year
  Sex: Female

DRUGS (2)
  1. LANTUS [Suspect]
     Dosage: DOSE:200 UNIT(S)
     Route: 058
  2. ANALGESICS [Concomitant]

REACTIONS (2)
  - BLINDNESS UNILATERAL [None]
  - VISUAL IMPAIRMENT [None]
